FAERS Safety Report 4860786-9 (Version None)
Quarter: 2005Q4

REPORT INFORMATION
  Report Type: 
  Country: None (occurrence: None)
  Receive Date: 20051216
  Receipt Date: 20051216
  Transmission Date: 20060501
  Serious: Yes (Other)
  Sender: FDA-Public Use
  Company Number: None

PATIENT
  Sex: Male
  Weight: 22.6799 kg

DRUGS (1)
  1. FLOVENT HFA [Suspect]
     Indication: ASTHMA
     Dosage: 2 PUFFS    2 X DAY   INHAL
     Route: 055
     Dates: start: 20051026, end: 20051104

REACTIONS (2)
  - AGGRESSION [None]
  - PHYSICAL ABUSE [None]
